FAERS Safety Report 8381288-1 (Version None)
Quarter: 2012Q2

REPORT INFORMATION
  Report Type: 
  Country: None (occurrence: None)
  Receive Date: 20120523
  Receipt Date: 20120510
  Transmission Date: 20120825
  Serious: Yes (Hospitalization, Other)
  Sender: FDA-Public Use
  Company Number: DE-TEVA-327118GER

PATIENT
  Age: 63 Year
  Sex: Female
  Weight: 68 kg

DRUGS (9)
  1. NORVASC 5 [Concomitant]
     Dates: start: 20111220
  2. DOXORUBICIN HCL [Suspect]
     Indication: BREAST CANCER
     Route: 042
     Dates: start: 20111124
  3. PACLITAXEL [Suspect]
     Indication: BREAST CANCER
     Route: 042
     Dates: start: 20111124
  4. BEVACIZUMAB [Suspect]
     Indication: BREAST CANCER
     Route: 042
     Dates: start: 20111124
  5. ATACAND 16 [Concomitant]
     Dosage: 16 MILLIGRAM;
     Dates: start: 20111220
  6. HCT 25 [Concomitant]
     Dosage: 25 MILLIGRAM;
     Dates: start: 20111220
  7. AMOXICILLIN [Concomitant]
     Dates: start: 20110309, end: 20120311
  8. PREDNISOLONE [Concomitant]
     Dosage: 15 MILLIGRAM;
  9. PANTOZOL 40 [Concomitant]
     Dosage: 40 MILLIGRAM;
     Dates: start: 20111124, end: 20120304

REACTIONS (3)
  - PNEUMONIA PRIMARY ATYPICAL [None]
  - PULMONARY TOXICITY [None]
  - PULMONARY EMBOLISM [None]
